FAERS Safety Report 25709130 (Version 6)
Quarter: 2025Q4

REPORT INFORMATION
  Report Type: Report from Study
  Country: US (occurrence: US)
  Receive Date: 20250821
  Receipt Date: 20251210
  Transmission Date: 20260118
  Serious: Yes (Other)
  Sender: NOVARTIS
  Company Number: US-002147023-NVSC2025US084337

PATIENT
  Sex: Female

DRUGS (1)
  1. KESIMPTA [Suspect]
     Active Substance: OFATUMUMAB
     Indication: Multiple sclerosis
     Dosage: 20 MG, QMO (0.4ML)
     Route: 058
     Dates: start: 20250520

REACTIONS (15)
  - Multiple sclerosis relapse [Unknown]
  - Abdominal infection [Unknown]
  - Multiple sclerosis [Unknown]
  - Tremor [Unknown]
  - Muscle twitching [Unknown]
  - Dizziness [Unknown]
  - Malaise [Unknown]
  - Illness [Unknown]
  - Frustration tolerance decreased [Unknown]
  - Anxiety [Unknown]
  - Bone pain [Recovered/Resolved]
  - Drug ineffective [Unknown]
  - Device malfunction [Unknown]
  - Incorrect dose administered [Unknown]
  - Product supply issue [Unknown]
